FAERS Safety Report 4964086-8 (Version None)
Quarter: 2006Q1

REPORT INFORMATION
  Report Type: 
  Country: None (occurrence: None)
  Receive Date: 20060330
  Receipt Date: 20060317
  Transmission Date: 20060701
  Serious: Yes (Hospitalization)
  Sender: FDA-Public Use
  Company Number: HQWYE407020MAR06

PATIENT
  Age: 35 Year
  Sex: Female

DRUGS (1)
  1. PREMARIN [Suspect]
     Indication: MENSTRUAL DISORDER
     Dosage: SEE IMAGE
     Route: 048
     Dates: start: 19590101

REACTIONS (3)
  - BENIGN FEMALE REPRODUCTIVE TRACT NEOPLASM [None]
  - FEELING ABNORMAL [None]
  - HYSTERECTOMY [None]
